FAERS Safety Report 8145832-1 (Version None)
Quarter: 2012Q1

REPORT INFORMATION
  Report Type: 
  Country: None (occurrence: None)
  Receive Date: 20120217
  Receipt Date: 20110509
  Transmission Date: 20120608
  Serious: No
  Sender: FDA-Public Use
  Company Number: US-ABBOTT-11P-163-0724362-00

PATIENT
  Sex: Male
  Weight: 84.898 kg

DRUGS (5)
  1. SIMCOR [Suspect]
     Indication: LDL/HDL RATIO INCREASED
     Dosage: 500/20MG AT BEDTIME
     Dates: start: 20110401
  2. CHERRY EXTRACT [Concomitant]
     Indication: PRODUCT USED FOR UNKNOWN INDICATION
     Dosage: DAILY
  3. VITAMIN D [Concomitant]
     Indication: PRODUCT USED FOR UNKNOWN INDICATION
     Dosage: DAILY
  4. HYZAAR [Concomitant]
     Indication: PRODUCT USED FOR UNKNOWN INDICATION
  5. SIMCOR [Suspect]
     Indication: BLOOD CHOLESTEROL INCREASED

REACTIONS (2)
  - FEELING HOT [None]
  - PRURITUS [None]
